FAERS Safety Report 25549478 (Version 1)
Quarter: 2025Q3

REPORT INFORMATION
  Report Type: Spontaneous
  Country: CA (occurrence: CA)
  Receive Date: 20250714
  Receipt Date: 20250714
  Transmission Date: 20251020
  Serious: Yes (Other)
  Sender: WAYLIS THERAPEUTICS
  Company Number: CA-WAYLIS-2025-CA-002203

PATIENT
  Age: 81 Year
  Sex: Male

DRUGS (10)
  1. RABEPRAZOLE SODIUM [Suspect]
     Active Substance: RABEPRAZOLE SODIUM
     Indication: Product used for unknown indication
     Route: 048
  2. ACETAMINOPHEN\OXYCODONE HYDROCHLORIDE [Suspect]
     Active Substance: ACETAMINOPHEN\OXYCODONE HYDROCHLORIDE
  3. BREO ELLIPTA [Suspect]
     Active Substance: FLUTICASONE FUROATE\VILANTEROL TRIFENATATE
  4. DULCOLAX (BISACODYL) [Suspect]
     Active Substance: BISACODYL
  5. GABAPENTIN [Suspect]
     Active Substance: GABAPENTIN
  6. HYDROXYCHLOROQUINE [Suspect]
     Active Substance: HYDROXYCHLOROQUINE
  7. NASONEX [Suspect]
     Active Substance: MOMETASONE FUROATE
  8. RISEDRONATE SODIUM [Suspect]
     Active Substance: RISEDRONATE SODIUM
  9. ROSUVASTATIN [Suspect]
     Active Substance: ROSUVASTATIN
  10. GLYCOPYRROLATE [Suspect]
     Active Substance: GLYCOPYRROLATE

REACTIONS (3)
  - Gastrointestinal disorder [Unknown]
  - Myalgia [Unknown]
  - Product substitution issue [Unknown]
